FAERS Safety Report 19577860 (Version 2)
Quarter: 2021Q4

REPORT INFORMATION
  Report Type: Spontaneous
  Country: CA (occurrence: CA)
  Receive Date: 20210719
  Receipt Date: 20211102
  Transmission Date: 20220303
  Serious: Yes (Other)
  Sender: FDA-Public Use
  Company Number: CA-TAKEDA-2021TUS043653

PATIENT
  Age: 27 Year
  Sex: Male

DRUGS (1)
  1. HUMAN IMMUNOGLOBULIN G [Suspect]
     Active Substance: HUMAN IMMUNOGLOBULIN G
     Indication: Sepsis
     Dosage: 60 GRAM, SINGLE
     Route: 042
     Dates: start: 20210305, end: 20210305

REACTIONS (4)
  - Anti A antibody positive [Recovering/Resolving]
  - Coombs test positive [Recovering/Resolving]
  - Haemoglobin decreased [Recovering/Resolving]
  - Haemolysis [Recovering/Resolving]

NARRATIVE: CASE EVENT DATE: 20210305
